FAERS Safety Report 8646011 (Version 3)
Quarter: 2013Q4

REPORT INFORMATION
  Report Type: Spontaneous
  Country: US (occurrence: US)
  Receive Date: 20120702
  Receipt Date: 20131031
  Transmission Date: 20140711
  Serious: Yes (Disabling)
  Sender: FDA-Public Use
  Company Number: US-MSD-1206USA04993

PATIENT
  Age: 28 Year
  Sex: Male
  Weight: 73.92 kg

DRUGS (1)
  1. PROPECIA [Suspect]
     Indication: ALOPECIA
     Dosage: 1 MG, QD
     Route: 048
     Dates: start: 2008, end: 201205

REACTIONS (24)
  - Impaired work ability [Not Recovered/Not Resolved]
  - Sexual dysfunction [Unknown]
  - Panic attack [Unknown]
  - Loss of libido [Unknown]
  - Breast pain [Unknown]
  - Weight decreased [Unknown]
  - Pollakiuria [Unknown]
  - Fatigue [Unknown]
  - Emotional disorder [Unknown]
  - Rash [Unknown]
  - Muscle atrophy [Unknown]
  - Hot flush [Unknown]
  - Insomnia [Unknown]
  - Arthralgia [Unknown]
  - Muscle tightness [Unknown]
  - Dry skin [Unknown]
  - Genital hypoaesthesia [Unknown]
  - Sensory loss [Unknown]
  - Pain [Unknown]
  - Hermaphroditism [Unknown]
  - Genital disorder male [Unknown]
  - Hypertension [Unknown]
  - Tachycardia [Unknown]
  - Anxiety [Unknown]
